FAERS Safety Report 7428609 (Version 2)
Quarter: 2013Q3

REPORT INFORMATION
  Report Type: Spontaneous
  Country: US (occurrence: US)
  Receive Date: 20100623
  Receipt Date: 20130904
  Transmission Date: 20140515
  Serious: Yes (Hospitalization)
  Sender: FDA-Public Use
  Company Number: US-RANBAXY-2010US-34867

PATIENT
  Age: 25 Year
  Sex: Female
  Weight: 65 kg

DRUGS (2)
  1. CIPROFLOXACIN [Suspect]
     Indication: PYELONEPHRITIS
     Dosage: 500 MG, BID
     Route: 048
  2. IBUPROFEN [Concomitant]
     Indication: PAIN
     Dosage: 400 MG, Q6H
     Route: 048

REACTIONS (1)
  - Anaphylactoid reaction [Recovering/Resolving]
